FAERS Safety Report 5782659-X (Version None)
Quarter: 2008Q2

REPORT INFORMATION
  Report Type: 
  Country: None (occurrence: None)
  Receive Date: 20080619
  Receipt Date: 20080619
  Transmission Date: 20081010
  Serious: Yes (Other)
  Sender: FDA-Public Use
  Company Number: None

PATIENT
  Age: 47 Year
  Sex: Male
  Weight: 59.8748 kg

DRUGS (1)
  1. AVELOX [Suspect]
     Indication: EXPOSURE TO COMMUNICABLE DISEASE
     Dosage: 800MG QD PO  (1 DOSE ONLY)
     Route: 048
     Dates: start: 20080602

REACTIONS (6)
  - CHEST PAIN [None]
  - ELECTROCARDIOGRAM ABNORMAL [None]
  - HYPERVENTILATION [None]
  - PALPITATIONS [None]
  - SINUS TACHYCARDIA [None]
  - TETANY [None]
